FAERS Safety Report 5234702-4 (Version None)
Quarter: 2007Q1

REPORT INFORMATION
  Report Type: 
  Country: None (occurrence: None)
  Receive Date: 20070209
  Receipt Date: 20070130
  Transmission Date: 20070707
  Serious: Yes (Death, Life-Threatening, Hospitalization)
  Sender: FDA-Public Use
  Company Number: DE-ABBOTT-06P-062-0339440-00

PATIENT
  Sex: Male

DRUGS (13)
  1. HUMIRA [Suspect]
     Indication: RHEUMATOID ARTHRITIS
     Route: 058
     Dates: start: 20041201, end: 20050401
  2. ALLOPURINOL SODIUM [Concomitant]
     Indication: DRUG USE FOR UNKNOWN INDICATION
  3. ALLOPURINOL SODIUM [Concomitant]
  4. PREDNISONE [Concomitant]
     Indication: DRUG USE FOR UNKNOWN INDICATION
  5. METAMIZOLE [Concomitant]
     Indication: PAIN
  6. FENTANYL [Concomitant]
     Indication: PAIN
  7. LORAZEPAM [Concomitant]
     Indication: DRUG USE FOR UNKNOWN INDICATION
  8. HALOPERIDOL [Concomitant]
     Indication: DRUG USE FOR UNKNOWN INDICATION
  9. PANTOPRAZOLE SODIUM [Concomitant]
     Indication: DRUG USE FOR UNKNOWN INDICATION
  10. VIGANTOLETTEN [Concomitant]
     Indication: DRUG USE FOR UNKNOWN INDICATION
  11. DIGITOXIN TAB [Concomitant]
     Indication: DRUG USE FOR UNKNOWN INDICATION
  12. METOPROLOL ZOK [Concomitant]
     Indication: DRUG USE FOR UNKNOWN INDICATION
  13. NULYTELY [Concomitant]
     Indication: DRUG USE FOR UNKNOWN INDICATION

REACTIONS (15)
  - AGITATION [None]
  - ANURIA [None]
  - ARTHROPATHY [None]
  - BLADDER CANCER RECURRENT [None]
  - CARDIAC FAILURE [None]
  - DEHYDRATION [None]
  - DISORIENTATION [None]
  - DYSPNOEA [None]
  - GENERAL PHYSICAL HEALTH DETERIORATION [None]
  - PAIN [None]
  - PNEUMONIA [None]
  - PULMONARY OEDEMA [None]
  - RENAL FAILURE [None]
  - SHOCK [None]
  - URINARY TRACT INFECTION [None]
